FAERS Safety Report 9620432 (Version 1)
Quarter: 2013Q4

REPORT INFORMATION
  Report Type: Spontaneous
  Country: US (occurrence: US)
  Receive Date: 20131015
  Receipt Date: 20131015
  Transmission Date: 20140711
  Serious: No
  Sender: FDA-Public Use
  Company Number: -SAAVPROD-BMS19035237

PATIENT
  Sex: Male

DRUGS (4)
  1. AVALIDE [Suspect]
  2. PRINZIDE [Suspect]
  3. LISINOPRIL [Suspect]
  4. EXFORGE [Suspect]

REACTIONS (7)
  - Headache [Unknown]
  - Dizziness [Unknown]
  - Fatigue [Unknown]
  - Chest pain [Unknown]
  - Hyperhidrosis [Unknown]
  - Dyspnoea [Unknown]
  - Cough [Unknown]
